FAERS Safety Report 13020306 (Version 6)
Quarter: 2017Q1

REPORT INFORMATION
  Report Type: Report from Study
  Country: CA (occurrence: CA)
  Receive Date: 20161212
  Receipt Date: 20170210
  Transmission Date: 20170428
  Serious: Yes (Death, Hospitalization, Other)
  Sender: FDA-Public Use
  Company Number: CA-ALEXION PHARMACEUTICALS INC-A201609547

PATIENT
  Age: 54 Year
  Sex: Male
  Weight: 81 kg

DRUGS (9)
  1. HEPARIN [Concomitant]
     Active Substance: HEPARIN SODIUM
     Indication: PRODUCT USED FOR UNKNOWN INDICATION
     Dosage: 5000 IU, BID
     Route: 058
  2. SENNA                              /00142201/ [Concomitant]
     Active Substance: SENNA LEAF
     Indication: PRODUCT USED FOR UNKNOWN INDICATION
     Dosage: 17.2 MG, BID
     Route: 048
  3. SOLIRIS [Suspect]
     Active Substance: ECULIZUMAB
     Indication: HAEMOLYTIC URAEMIC SYNDROME
     Dosage: 900 MG, QW
     Route: 042
     Dates: start: 20160902
  4. FERROUS FUMARATE [Concomitant]
     Active Substance: FERROUS FUMARATE
     Indication: PRODUCT USED FOR UNKNOWN INDICATION
     Dosage: 300 MG, QD
     Route: 048
  5. MAGNESIUM OXIDE. [Concomitant]
     Active Substance: MAGNESIUM OXIDE
     Indication: PRODUCT USED FOR UNKNOWN INDICATION
     Dosage: 420 MG, QD
     Route: 048
  6. ASACOL [Concomitant]
     Active Substance: MESALAMINE
     Indication: PRODUCT USED FOR UNKNOWN INDICATION
     Dosage: 800 MG, BID
     Route: 048
  7. METOPROLOL. [Concomitant]
     Active Substance: METOPROLOL
     Indication: HYPERTENSION
     Dosage: 25 MG, BID
     Route: 048
  8. SOLIRIS [Suspect]
     Active Substance: ECULIZUMAB
     Dosage: 1200 MG, Q2W
     Route: 042
     Dates: end: 20161212
  9. AMLODIPINE [Concomitant]
     Active Substance: AMLODIPINE BESYLATE
     Indication: HYPERTENSION
     Dosage: 10 MG, QD
     Route: 048

REACTIONS (13)
  - Cardiac arrest [Fatal]
  - Heart rate increased [Not Recovered/Not Resolved]
  - Pleural effusion [Not Recovered/Not Resolved]
  - Asthenia [Not Recovered/Not Resolved]
  - Intestinal obstruction [Fatal]
  - Fluid overload [Fatal]
  - Condition aggravated [Unknown]
  - Retching [Recovered/Resolved]
  - Lethargy [Unknown]
  - End stage renal disease [Unknown]
  - Respiratory rate increased [Not Recovered/Not Resolved]
  - Blood pressure increased [Not Recovered/Not Resolved]
  - Electrolyte imbalance [Unknown]

NARRATIVE: CASE EVENT DATE: 201611
